FAERS Safety Report 19038058 (Version 1)
Quarter: 2021Q1

REPORT INFORMATION
  Report Type: Spontaneous
  Country: US (occurrence: US)
  Receive Date: 20210322
  Receipt Date: 20210322
  Transmission Date: 20210420
  Serious: Yes (Other)
  Sender: FDA-Public Use
  Company Number: US-MYLANLABS-2021M1016370

PATIENT
  Age: 47 Year
  Sex: Female

DRUGS (4)
  1. RITUXIMAB. [Concomitant]
     Active Substance: RITUXIMAB
     Indication: ACQUIRED HAEMOPHILIA
     Dosage: 375 MILLIGRAM/SQ. METER, QW 4 WEEKLY DOSES OF RITUXIMAB 375MG/M2
     Route: 065
  2. PREDNISONE. [Suspect]
     Active Substance: PREDNISONE
     Indication: ACQUIRED HAEMOPHILIA
     Dosage: 1 MILLIGRAM/KILOGRAM
     Route: 065
  3. EMICIZUMAB. [Concomitant]
     Active Substance: EMICIZUMAB
     Indication: ACQUIRED HAEMOPHILIA
     Dosage: 3 MILLIGRAM/KILOGRAM, QW 4 WEEKLY LOADING DOSES OF EMICIZUMAB 3MG/KG
     Route: 065
  4. PREDNISONE. [Suspect]
     Active Substance: PREDNISONE
     Indication: FACTOR VIII DEFICIENCY

REACTIONS (1)
  - Therapy non-responder [Unknown]
